FAERS Safety Report 10525480 (Version 2)
Quarter: 2014Q4

REPORT INFORMATION
  Report Type: Spontaneous
  Country: US (occurrence: US)
  Receive Date: 20141017
  Receipt Date: 20141017
  Transmission Date: 20150528
  Serious: Yes (Other)
  Sender: FDA-Public Use
  Company Number: US-TARO-2014TAR00446

PATIENT
  Age: 3 Year
  Sex: Male
  Weight: 15.87 kg

DRUGS (2)
  1. FLINTSTONES MULTIVITAMIN [Concomitant]
     Dosage: UNK, 1X/DAY
  2. CETIRIZINE HCL [Suspect]
     Active Substance: CETIRIZINE HYDROCHLORIDE
     Indication: NASAL CONGESTION
     Dosage: .5 TSP, 1X/DAY
     Route: 048
     Dates: start: 20141001, end: 20141003

REACTIONS (2)
  - Post streptococcal glomerulonephritis [Recovering/Resolving]
  - Infectious mononucleosis [None]

NARRATIVE: CASE EVENT DATE: 20141003
